FAERS Safety Report 11206343 (Version 1)
Quarter: 2015Q2

REPORT INFORMATION
  Report Type: Spontaneous
  Country: IT (occurrence: IT)
  Receive Date: 20150622
  Receipt Date: 20150622
  Transmission Date: 20150821
  Serious: Yes (Death, Other)
  Sender: FDA-Public Use
  Company Number: IT-MYLANLABS-IT2013365203

PATIENT

DRUGS (3)
  1. AZACITIDINE. [Suspect]
     Active Substance: AZACITIDINE
     Indication: CHRONIC MYELOMONOCYTIC LEUKAEMIA
     Dosage: 75MG/M2, SCHEDULE 5+2+2, EACH CYCLE EVERY 4 WEEKS
     Route: 065
  2. CISPLATIN. [Suspect]
     Active Substance: CISPLATIN
     Indication: LARYNGEAL CANCER
     Dosage: CUMULATIVE DOSE: 428 MG
     Route: 065
     Dates: start: 201005
  3. HYDROXYCARBAMIDE [Suspect]
     Active Substance: HYDROXYUREA
     Indication: MYELODYSPLASTIC SYNDROME
     Route: 065

REACTIONS (7)
  - Second primary malignancy [Fatal]
  - Pancytopenia [Unknown]
  - Acute myeloid leukaemia [Fatal]
  - Lung disorder [Fatal]
  - Myelodysplastic syndrome [Fatal]
  - Myeloproliferative disorder [Fatal]
  - Chronic myelomonocytic leukaemia [Fatal]

NARRATIVE: CASE EVENT DATE: 201105
